FAERS Safety Report 7767850-5 (Version None)
Quarter: 2011Q3

REPORT INFORMATION
  Report Type: 
  Country: None (occurrence: None)
  Receive Date: 20110922
  Receipt Date: 20110419
  Transmission Date: 20111222
  Serious: No
  Sender: FDA-Public Use
  Company Number: US-ASTRAZENECA-2011SE23450

PATIENT
  Age: 56 Year
  Sex: Female

DRUGS (2)
  1. SUBOXONE [Suspect]
  2. SEROQUEL [Suspect]
     Route: 048

REACTIONS (6)
  - ABNORMAL BEHAVIOUR [None]
  - BIPOLAR DISORDER [None]
  - ANXIETY [None]
  - DRUG DOSE OMISSION [None]
  - MENTAL DISORDER [None]
  - WITHDRAWAL SYNDROME [None]
